FAERS Safety Report 6126948-8 (Version None)
Quarter: 2009Q1

REPORT INFORMATION
  Report Type: 
  Country: None (occurrence: None)
  Receive Date: 20090320
  Receipt Date: 20090309
  Transmission Date: 20090719
  Serious: Yes (Hospitalization)
  Sender: FDA-Public Use
  Company Number: GB-TEVA-187232ISR

PATIENT
  Age: 13 Year
  Sex: Male

DRUGS (1)
  1. SALBUTAMOL [Suspect]

REACTIONS (2)
  - INTENTIONAL DRUG MISUSE [None]
  - THERMAL BURN [None]
